FAERS Safety Report 10983202 (Version 3)
Quarter: 2015Q2

REPORT INFORMATION
  Report Type: Report from Study
  Country: US (occurrence: US)
  Receive Date: 20150403
  Receipt Date: 20150529
  Transmission Date: 20150821
  Serious: Yes (Hospitalization)
  Sender: FDA-Public Use
  Company Number: US-PFIZER INC-2015110897

PATIENT
  Age: 50 Year
  Sex: Female
  Weight: 122 kg

DRUGS (2)
  1. HYDROCHLOROTHIAZIDE. [Concomitant]
     Active Substance: HYDROCHLOROTHIAZIDE
     Dosage: 12.5 MG, DAILY
  2. ELELYSO [Suspect]
     Active Substance: TALIGLUCERASE ALFA
     Indication: GAUCHER^S DISEASE TYPE I
     Dosage: 4800 UNITS, EVERY 2 WEEKS BIWEEKLY
     Route: 042
     Dates: start: 20140709

REACTIONS (1)
  - Nephrolithiasis [Recovering/Resolving]

NARRATIVE: CASE EVENT DATE: 20150307
